FAERS Safety Report 7562631-X (Version None)
Quarter: 2011Q2

REPORT INFORMATION
  Report Type: 
  Country: None (occurrence: None)
  Receive Date: 20110622
  Receipt Date: 20110613
  Transmission Date: 20111010
  Serious: Yes (Life-Threatening, Hospitalization)
  Sender: FDA-Public Use
  Company Number: IT-TEVA-286925ISR

PATIENT
  Age: 61 Year
  Sex: Female

DRUGS (14)
  1. FLUOXETINE HCL [Suspect]
  2. LAGERSTROEMIA SPECIOSA [Suspect]
  3. SENNA [Suspect]
  4. ASCLEPIAS GERMANA [Suspect]
  5. GARCINIA CAMBOGIA+ALOE [Suspect]
  6. CALIFORNIA POPPY [Suspect]
  7. GLUCOMANNAN [Suspect]
  8. HAWKWEED [Suspect]
  9. PASSION FLOWER [Suspect]
  10. ASCOPHYLLUM (TWO GALENIC PRODUCTS) [Suspect]
  11. TARAXACUM OFFICINALIS [Suspect]
  12. CASCARA TAB [Suspect]
  13. MA HUANG [Suspect]
  14. FRANGULA [Suspect]

REACTIONS (2)
  - TORSADE DE POINTES [None]
  - ATRIAL TACHYCARDIA [None]
